FAERS Safety Report 15809161 (Version 1)
Quarter: 2019Q1

REPORT INFORMATION
  Report Type: Spontaneous
  Country: TR (occurrence: TR)
  Receive Date: 20190110
  Receipt Date: 20190110
  Transmission Date: 20190417
  Serious: Yes (Hospitalization)
  Sender: FDA-Public Use
  Company Number: TR-MYLANLABS-2019M1001589

PATIENT
  Age: 41 Year
  Sex: Male

DRUGS (1)
  1. PREDNISOLONE. [Suspect]
     Active Substance: PREDNISOLONE
     Indication: DIFFUSE LAMELLAR KERATITIS
     Dosage: HOURLY
     Route: 061

REACTIONS (4)
  - Fungal infection [Recovering/Resolving]
  - Treatment failure [Unknown]
  - Staphylococcal infection [Recovering/Resolving]
  - Infective keratitis [Recovering/Resolving]
